FAERS Safety Report 5706403-7 (Version None)
Quarter: 2008Q2

REPORT INFORMATION
  Report Type: 
  Country: None (occurrence: None)
  Receive Date: 20080411
  Receipt Date: 20080219
  Transmission Date: 20081010
  Serious: Yes (Life-Threatening)
  Sender: FDA-Public Use
  Company Number: 2008G1000024

PATIENT
  Age: 77 Year
  Sex: Male

DRUGS (15)
  1. TORSEMIDE [Suspect]
     Indication: CARDIAC FAILURE
     Dosage: 10 MG;DAILY;ORAL
     Route: 048
     Dates: start: 20040730, end: 20040809
  2. NEBIVOLOL HCL [Suspect]
     Indication: TACHYCARDIA
     Dosage: 5 MG; TWICE A DAY; ORAL
     Route: 048
     Dates: start: 20040714, end: 20040814
  3. CEPHORAL (CEFIXIME) [Suspect]
     Indication: CHRONIC OBSTRUCTIVE PULMONARY DISEASE
     Dosage: 200 MG;TWICE A DAY;
     Dates: start: 20040803, end: 20040814
  4. METHYLPREDNISOLONE [Suspect]
     Indication: CHRONIC OBSTRUCTIVE PULMONARY DISEASE
     Dosage: 40 MG;
     Dates: start: 20040708, end: 20040805
  5. NORVASC [Suspect]
     Indication: HYPERTENSION
     Dosage: 5 MG;DAILY;ORAL
     Route: 048
     Dates: start: 20040708, end: 20040809
  6. PRINZIDE [Suspect]
     Indication: HYPERTENSION
     Dosage: ORAL
     Route: 048
     Dates: start: 20040717, end: 20040809
  7. LOPIRIN  (LOPERAMIDE HYDROCHLORIDE) [Suspect]
     Indication: HYPERTENSION
     Dosage: 25 MG;DAILY;ORAL
     Route: 048
     Dates: start: 20040714, end: 20040814
  8. PULMICORT [Suspect]
     Indication: CHRONIC OBSTRUCTIVE PULMONARY DISEASE
     Dates: start: 20040717, end: 20040814
  9. PANTOZAL (PANTOPRAZOLE) [Suspect]
     Indication: PROPHYLAXIS
     Dosage: 20 MG, DAILY; ORAL
     Route: 048
     Dates: start: 20040708, end: 20040814
  10. ACETYLSALICYLIC ACID SRT [Suspect]
     Indication: THROMBOSIS PROPHYLAXIS
     Dosage: 100 MG; DAILY; ORAL
     Route: 048
     Dates: start: 20040717, end: 20040814
  11. FORADIL [Suspect]
     Indication: CHRONIC OBSTRUCTIVE PULMONARY DISEASE
     Dates: start: 20040726, end: 20040814
  12. ENOXAPARIN SODIUM [Suspect]
     Indication: THROMBOSIS PROPHYLAXIS
     Dosage: DAILY; SUBCUTANEOUS
     Route: 058
     Dates: start: 20040728, end: 20040806
  13. ACETYLCYSTEINE [Suspect]
     Indication: CHRONIC OBSTRUCTIVE PULMONARY DISEASE
     Dosage: 600 MG;DAILY; ORAL
     Route: 048
     Dates: start: 20040728, end: 20040814
  14. PARACODIN (DIHYDROCODEINE BITARTRATE) [Suspect]
     Indication: COUGH
     Dosage: ORAL
     Route: 048
     Dates: start: 20040729, end: 20040807
  15. DICODID  (HYDROCODONE BITARTRATE) [Suspect]
     Indication: CHRONIC OBSTRUCTIVE PULMONARY DISEASE
     Dosage: SUBCUTANEOUS
     Route: 058
     Dates: start: 20040803, end: 20040814

REACTIONS (3)
  - PNEUMONIA [None]
  - STEVENS-JOHNSON SYNDROME [None]
  - TOXIC EPIDERMAL NECROLYSIS [None]
